FAERS Safety Report 17243193 (Version 6)
Quarter: 2021Q2

REPORT INFORMATION
  Report Type: Spontaneous
  Country: CN (occurrence: CN)
  Receive Date: 20200107
  Receipt Date: 20210521
  Transmission Date: 20210716
  Serious: Yes (Hospitalization)
  Sender: FDA-Public Use
  Company Number: CN-CELGENEUS-CHN-20200100523

PATIENT
  Age: 56 Year
  Sex: Male
  Weight: 55 kg

DRUGS (27)
  1. SERPLULIMAB. [Suspect]
     Active Substance: SERPLULIMAB
     Indication: NON-SMALL CELL LUNG CANCER
     Route: 041
     Dates: start: 20191001, end: 20191120
  2. SERPLULIMAB. [Suspect]
     Active Substance: SERPLULIMAB
     Route: 041
  3. BUCINNAZINE HYDROCHLORIDE [Concomitant]
     Route: 058
     Dates: start: 20191220, end: 20191220
  4. ABRAXANE [Suspect]
     Active Substance: PACLITAXEL
     Dosage: 100 MILLIGRAM/SQ. METER
     Route: 041
     Dates: start: 20191204, end: 20191204
  5. CARBOPLATIN. [Suspect]
     Active Substance: CARBOPLATIN
     Route: 041
     Dates: start: 20191120, end: 20191120
  6. ZOLEDRONIC ACID [Concomitant]
     Active Substance: ZOLEDRONIC ACID
     Indication: METASTASES TO BONE
     Route: 041
     Dates: start: 20191213, end: 20191213
  7. SORBITOL. [Concomitant]
     Active Substance: SORBITOL
     Indication: CONSTIPATION
     Dosage: 20 MILLILITER
     Route: 050
     Dates: start: 20191223, end: 20191225
  8. ABRAXANE [Suspect]
     Active Substance: PACLITAXEL
     Indication: NON-SMALL CELL LUNG CANCER
     Dosage: 100 MILLIGRAM/SQ. METER
     Route: 041
     Dates: start: 20191001, end: 20191120
  9. CARBOPLATIN. [Suspect]
     Active Substance: CARBOPLATIN
     Indication: NON-SMALL CELL LUNG CANCER
     Route: 041
     Dates: start: 20191001, end: 20191001
  10. TROPISETRON [Concomitant]
     Active Substance: TROPISETRON
     Indication: VOMITING
     Route: 041
     Dates: start: 20191204, end: 20191204
  11. MORPHINE HYDROCHLORIDE [Concomitant]
     Active Substance: MORPHINE HYDROCHLORIDE
     Dosage: 20 MILLIGRAM
     Route: 048
     Dates: start: 20191231
  12. COMPOUND AMINO ACID [Concomitant]
     Active Substance: AMINO ACIDS, SOURCE UNSPECIFIED
     Indication: SUPPORTIVE CARE
     Route: 041
     Dates: start: 20191213, end: 20191213
  13. DICLOFENAC SODIUM. [Concomitant]
     Active Substance: DICLOFENAC SODIUM
     Indication: PYREXIA
     Route: 046
     Dates: start: 20191214, end: 20191214
  14. BUCINNAZINE HYDROCHLORIDE [Concomitant]
     Route: 058
     Dates: start: 20191223, end: 20191223
  15. LACTULOSE. [Concomitant]
     Active Substance: LACTULOSE
     Indication: CONSTIPATION
     Dosage: 90 MILLILITER
     Route: 048
     Dates: start: 20191223, end: 20191224
  16. CARBOPLATIN. [Suspect]
     Active Substance: CARBOPLATIN
     Route: 041
     Dates: start: 20191023, end: 20191023
  17. MANNITOL. [Concomitant]
     Active Substance: MANNITOL
     Dosage: 250 MILLILITER
     Route: 041
     Dates: start: 20200108, end: 20200110
  18. OXYCODONE HYDROCHLORIDE. [Concomitant]
     Active Substance: OXYCODONE HYDROCHLORIDE
     Indication: CHEST PAIN
     Dosage: 20 MILLIGRAM
     Route: 048
     Dates: start: 20191211
  19. DEXAMETHASONE SODIUM PHOSPHATE. [Concomitant]
     Active Substance: DEXAMETHASONE SODIUM PHOSPHATE
     Indication: ANAPHYLACTIC REACTION
     Dosage: 2.5 MILLIGRAM
     Route: 041
     Dates: start: 20191226, end: 20200103
  20. BUCINNAZINE HYDROCHLORIDE [Concomitant]
     Route: 058
     Dates: start: 20191226, end: 20191226
  21. MANNITOL. [Concomitant]
     Active Substance: MANNITOL
     Indication: POLYURIA
     Dosage: 250 MILLILITER
     Route: 041
     Dates: start: 20191226, end: 20200103
  22. PANTOPRAZOLE SODIUM. [Concomitant]
     Active Substance: PANTOPRAZOLE SODIUM
     Indication: DYSPEPSIA
     Route: 041
     Dates: start: 20191204, end: 20191204
  23. MORPHINE HYDROCHLORIDE [Concomitant]
     Active Substance: MORPHINE HYDROCHLORIDE
     Indication: CHEST PAIN
     Dosage: 20 MILLIGRAM
     Route: 048
     Dates: start: 20191211, end: 20191216
  24. DEXAMETHASONE SODIUM PHOSPHATE. [Concomitant]
     Active Substance: DEXAMETHASONE SODIUM PHOSPHATE
     Indication: PYREXIA
     Route: 041
     Dates: start: 20191214, end: 20191214
  25. DEXAMETHASONE SODIUM PHOSPHATE. [Concomitant]
     Active Substance: DEXAMETHASONE SODIUM PHOSPHATE
     Dosage: 2.5 MILLIGRAM
     Route: 041
     Dates: start: 20200108, end: 20200110
  26. BUCINNAZINE HYDROCHLORIDE [Concomitant]
     Route: 058
     Dates: start: 20191224, end: 20191224
  27. BUCINNAZINE HYDROCHLORIDE [Concomitant]
     Indication: CHEST PAIN
     Route: 058
     Dates: start: 20191219, end: 20191219

REACTIONS (2)
  - Anaemia [Not Recovered/Not Resolved]
  - Platelet count decreased [Recovered/Resolved]

NARRATIVE: CASE EVENT DATE: 20191008
